FAERS Safety Report 21485121 (Version 3)
Quarter: 2022Q4

REPORT INFORMATION
  Report Type: Spontaneous
  Country: US (occurrence: US)
  Receive Date: 20221020
  Receipt Date: 20221027
  Transmission Date: 20230113
  Serious: Yes (Life-Threatening, Hospitalization, Other)
  Sender: FDA-Public Use
  Company Number: US-PFIZER INC-PV202200079154

PATIENT
  Age: 24 Year
  Sex: Male

DRUGS (4)
  1. PROPOFOL [Suspect]
     Active Substance: PROPOFOL
     Indication: Sedation
     Dosage: UNK
  2. PROPOFOL [Suspect]
     Active Substance: PROPOFOL
     Indication: Agitation
  3. FENTANYL [Concomitant]
     Active Substance: FENTANYL
     Indication: Sedation
     Dosage: UNK
  4. KETAMINE [Concomitant]
     Active Substance: KETAMINE
     Indication: Agitation
     Dosage: UNK

REACTIONS (5)
  - Hyperkalaemia [Recovered/Resolved]
  - Lactic acidosis [Recovered/Resolved]
  - Hypercapnia [Unknown]
  - Hypotension [Recovering/Resolving]
  - Propofol infusion syndrome [Recovered/Resolved]
